FAERS Safety Report 19909096 (Version 1)
Quarter: 2021Q4

REPORT INFORMATION
  Report Type: Spontaneous
  Country: US (occurrence: US)
  Receive Date: 20211001
  Receipt Date: 20211001
  Transmission Date: 20220303
  Serious: No
  Sender: FDA-Public Use
  Company Number: US-AMARIN PHARMA, INC.-2020AMR000795

PATIENT
  Age: 60 Year
  Sex: Male
  Weight: 84.9 kg

DRUGS (2)
  1. VASCEPA [Suspect]
     Active Substance: ICOSAPENT ETHYL
     Indication: Cardiovascular event prophylaxis
     Route: 048
     Dates: start: 202010, end: 202011
  2. VASCEPA [Suspect]
     Active Substance: ICOSAPENT ETHYL
     Route: 048
     Dates: start: 202011

REACTIONS (6)
  - Rotator cuff repair [Recovering/Resolving]
  - Off label use [Unknown]
  - Therapeutic response unexpected [Unknown]
  - Therapy interrupted [Unknown]
  - Intentional overdose [Unknown]
  - Product colour issue [Unknown]

NARRATIVE: CASE EVENT DATE: 20201101
